FAERS Safety Report 7001271-8 (Version None)
Quarter: 2010Q3

REPORT INFORMATION
  Report Type: 
  Country: None (occurrence: None)
  Receive Date: 20100920
  Receipt Date: 20100908
  Transmission Date: 20110219
  Serious: Yes (Other)
  Sender: FDA-Public Use
  Company Number: JP-ROCHE-721816

PATIENT
  Sex: Female

DRUGS (6)
  1. AVASTIN [Suspect]
     Indication: RECTAL CANCER
     Dosage: DOSAGE IS UNCERATIN
     Route: 041
  2. IRINOTECAN HYDROCHLORIDE [Suspect]
     Indication: RECTAL CANCER
     Dosage: DOSAGE IS UNCERTAIN
     Route: 041
  3. LEUCOVORIN CALCIUM [Concomitant]
     Dosage: DRUG REPORTED: LEVOFOLINATE CALCIUM
     Route: 041
  4. FLUOROURACIL [Concomitant]
     Dosage: DOSAGE IS UNCERTAIN; ROUTE: INTRAVENOUS BOLUS
     Route: 042
  5. FLUOROURACIL [Concomitant]
     Dosage: ROUTE: INTRAVENOUS DRIP, DOSAGE IS UNCERTAIN.
     Route: 042
  6. LOXONIN [Concomitant]
     Route: 048

REACTIONS (3)
  - DIARRHOEA [None]
  - HYDRONEPHROSIS [None]
  - VESICAL FISTULA [None]
